FAERS Safety Report 8023071-2 (Version None)
Quarter: 2012Q1

REPORT INFORMATION
  Report Type: 
  Country: None (occurrence: None)
  Receive Date: 20120104
  Receipt Date: 20120103
  Transmission Date: 20120608
  Serious: Yes (Disabling, Other)
  Sender: FDA-Public Use
  Company Number: US-PFIZER INC-2011154037

PATIENT
  Sex: Female
  Weight: 79.365 kg

DRUGS (5)
  1. VITAMIN D [Concomitant]
     Dosage: UNK
  2. VITAMIN B-12 [Concomitant]
     Dosage: UNK
  3. PREDNISONE [Concomitant]
     Dosage: 2.5 MG, WEEKLY
  4. LYRICA [Suspect]
     Indication: PAIN MANAGEMENT
     Dosage: UNK, 2X/ DAY
     Route: 048
     Dates: start: 20110630, end: 20110101
  5. VICODIN [Concomitant]
     Indication: PAIN
     Dosage: UNK, AS NEEDED

REACTIONS (9)
  - PYREXIA [None]
  - ABASIA [None]
  - FEELING DRUNK [None]
  - PARALYSIS [None]
  - CONSTIPATION [None]
  - MOVEMENT DISORDER [None]
  - PAIN [None]
  - FATIGUE [None]
  - DYSARTHRIA [None]
